FAERS Safety Report 21322257 (Version 2)
Quarter: 2024Q3

REPORT INFORMATION
  Report Type: Report from Study
  Country: CO (occurrence: CO)
  Receive Date: 20220912
  Receipt Date: 20240923
  Transmission Date: 20241017
  Serious: Yes (Hospitalization)
  Sender: NOVARTIS
  Company Number: CO-NOVARTISPH-NVSC2022CO183304

PATIENT
  Sex: Male
  Weight: 68 kg

DRUGS (4)
  1. TASIGNA [Suspect]
     Active Substance: NILOTINIB
     Indication: Chronic myeloid leukaemia
     Dosage: UNK UNK, Q12H (BY MOUTH)
     Route: 048
     Dates: start: 2015
  2. TASIGNA [Suspect]
     Active Substance: NILOTINIB
     Dosage: 400 MG, QD
     Route: 048
  3. TASIGNA [Suspect]
     Active Substance: NILOTINIB
     Dosage: 400 MG, Q12H
     Route: 048
     Dates: start: 20160101
  4. LEVOTHYROXINE [Concomitant]
     Active Substance: LEVOTHYROXINE\LEVOTHYROXINE SODIUM
     Indication: Product used for unknown indication
     Dosage: 100 MG, (24 HOURS) (START 2 MONTHS, STOP 1 MONTH)
     Route: 048

REACTIONS (8)
  - Splenomegaly [Unknown]
  - Inflammation [Unknown]
  - Chronic myeloid leukaemia recurrent [Unknown]
  - Asthenia [Unknown]
  - Malaise [Unknown]
  - Laboratory test abnormal [Unknown]
  - Hypertension [Unknown]
  - Weight decreased [Unknown]
